FAERS Safety Report 8537740-9 (Version None)
Quarter: 2012Q3

REPORT INFORMATION
  Report Type: 
  Country: None (occurrence: None)
  Receive Date: 20120725
  Receipt Date: 20120720
  Transmission Date: 20120928
  Serious: Yes (Death, Hospitalization, Other)
  Sender: FDA-Public Use
  Company Number: US-AMGEN-US326757

PATIENT
  Age: 53 Year
  Sex: Male
  Weight: 88.5 kg

DRUGS (5)
  1. DEXAMETHASONE [Concomitant]
     Dosage: UNK UNK, UNK
  2. NEULASTA [Suspect]
     Indication: CHEMOTHERAPY
     Dosage: 6 UNK, UNK
     Route: 058
     Dates: start: 20070411, end: 20070726
  3. PROCRIT [Suspect]
     Indication: ANAEMIA OF MALIGNANT DISEASE
     Dosage: 40000 IU, QD
     Route: 058
     Dates: start: 20080111, end: 20080111
  4. MORPHINE SULFATE [Concomitant]
     Dosage: 60 MG, BID
  5. ARANESP [Suspect]
     Indication: ANAEMIA OF MALIGNANT DISEASE
     Dosage: UNK UNK, UNK
     Dates: start: 20070410, end: 20071106

REACTIONS (10)
  - MOUTH HAEMORRHAGE [None]
  - EPISTAXIS [None]
  - HAEMOGLOBIN DECREASED [None]
  - LUNG NEOPLASM MALIGNANT [None]
  - CONFUSIONAL STATE [None]
  - METASTASES TO BONE [None]
  - CONSTIPATION [None]
  - METASTASES TO CENTRAL NERVOUS SYSTEM [None]
  - DEHYDRATION [None]
  - BLOOD PRESSURE DECREASED [None]
